FAERS Safety Report 4980140-9 (Version None)
Quarter: 2006Q2

REPORT INFORMATION
  Report Type: 
  Country: None (occurrence: None)
  Receive Date: 20060421
  Receipt Date: 20050706
  Transmission Date: 20061013
  Serious: Yes (Death, Hospitalization, Disabling)
  Sender: FDA-Public Use
  Company Number: US-MERCK-0507USA00915

PATIENT
  Age: 37 Year
  Sex: Male

DRUGS (4)
  1. VIOXX [Suspect]
     Indication: BACK DISORDER
     Route: 048
     Dates: start: 20020101, end: 20030101
  2. CELEBREX [Concomitant]
     Route: 065
  3. BEXTRA [Concomitant]
     Route: 065
  4. [THERAPY UNSPECIFIED] [Concomitant]
     Indication: HYPERTENSION
     Route: 065

REACTIONS (2)
  - BACK DISORDER [None]
  - HYPERTENSIVE HEART DISEASE [None]
